FAERS Safety Report 22121035 (Version 1)
Quarter: 2023Q1

REPORT INFORMATION
  Report Type: Spontaneous
  Country: GB (occurrence: GB)
  Receive Date: 20230321
  Receipt Date: 20230321
  Transmission Date: 20230417
  Serious: Yes (Other)
  Sender: FDA-Public Use
  Company Number: None

PATIENT
  Sex: Female

DRUGS (3)
  1. DOXYCYCLINE [Interacting]
     Active Substance: DOXYCYCLINE
  2. PEPPERMINT OIL [Interacting]
     Active Substance: PEPPERMINT OIL
     Indication: Irritable bowel syndrome
  3. AMITRIPTYLINE [Interacting]
     Active Substance: AMITRIPTYLINE

REACTIONS (7)
  - Drug interaction [Unknown]
  - Angina pectoris [Recovering/Resolving]
  - Chest discomfort [Recovering/Resolving]
  - Dyspnoea [Recovering/Resolving]
  - Paraesthesia [Recovering/Resolving]
  - Abdominal discomfort [Recovering/Resolving]
  - Hypoaesthesia [Recovering/Resolving]
